FAERS Safety Report 24664955 (Version 2)
Quarter: 2024Q4

REPORT INFORMATION
  Report Type: Spontaneous
  Country: IL (occurrence: IL)
  Receive Date: 20241126
  Receipt Date: 20241202
  Transmission Date: 20250114
  Serious: No
  Sender: NOVARTIS
  Company Number: IL-002147023-NVSC2024IL225246

PATIENT
  Sex: Female

DRUGS (1)
  1. LEQVIO [Suspect]
     Active Substance: INCLISIRAN SODIUM
     Indication: Low density lipoprotein increased
     Dosage: UNK
     Route: 065

REACTIONS (1)
  - Therapy non-responder [Unknown]
